FAERS Safety Report 9720598 (Version 4)
Quarter: 2014Q4

REPORT INFORMATION
  Report Type: Report from Study
  Country: JP (occurrence: JP)
  Receive Date: 20131129
  Receipt Date: 20141230
  Transmission Date: 20150529
  Serious: Yes (Death)
  Sender: FDA-Public Use
  Company Number: JP-SA-2013SA122854

PATIENT
  Age: 5 Year
  Sex: Male

DRUGS (7)
  1. EVOLTRA [Suspect]
     Active Substance: CLOFARABINE
     Indication: ACUTE LYMPHOCYTIC LEUKAEMIA RECURRENT
     Dosage: DOSE IS 18MG/BODY
     Route: 042
     Dates: start: 20130820, end: 20130824
  2. ENDOXAN [Suspect]
     Active Substance: CYCLOPHOSPHAMIDE
     Indication: ACUTE LYMPHOCYTIC LEUKAEMIA RECURRENT
     Dosage: 260 MG/BODY/DAY
     Route: 042
     Dates: start: 20130820, end: 20130824
  3. ETOPOSIDE. [Suspect]
     Active Substance: ETOPOSIDE
     Indication: ACUTE LYMPHOCYTIC LEUKAEMIA RECURRENT
     Dosage: DOSE IS 60MG/BODY
     Route: 042
     Dates: start: 20130820, end: 20130824
  4. ENDOXAN [Suspect]
     Active Substance: CYCLOPHOSPHAMIDE
     Indication: ACUTE LYMPHOCYTIC LEUKAEMIA RECURRENT
     Dosage: DOSE: 260MG/BODY/DAY
     Route: 042
     Dates: start: 20130717, end: 20130721
  5. ETOPOSIDE. [Suspect]
     Active Substance: ETOPOSIDE
     Indication: ACUTE LYMPHOCYTIC LEUKAEMIA RECURRENT
     Dosage: DOSE IS 60MG/BODY
     Route: 042
     Dates: start: 20130717, end: 20130721
  6. EVOLTRA [Suspect]
     Active Substance: CLOFARABINE
     Indication: ACUTE LYMPHOCYTIC LEUKAEMIA RECURRENT
     Dosage: DOSE IS 18MG/BODY
     Route: 042
     Dates: start: 20130717, end: 20130721
  7. MELPHALAN [Concomitant]
     Active Substance: MELPHALAN

REACTIONS (8)
  - Venoocclusive liver disease [Fatal]
  - Herpes zoster [Recovered/Resolved]
  - Pancytopenia [Recovering/Resolving]
  - Bacteraemia [Recovered/Resolved]
  - Hepatic function abnormal [Recovered/Resolved]
  - Hepatic function abnormal [Recovered/Resolved]
  - Pancytopenia [Recovering/Resolving]
  - Bacteraemia [Recovered/Resolved]

NARRATIVE: CASE EVENT DATE: 20130717
